FAERS Safety Report 24818733 (Version 1)
Quarter: 2025Q1

REPORT INFORMATION
  Report Type: Spontaneous
  Country: US (occurrence: None)
  Receive Date: 20250108
  Receipt Date: 20250108
  Transmission Date: 20250409
  Serious: Yes (Other)
  Sender: FDA-CTU
  Company Number: None

PATIENT
  Age: 86 Year
  Sex: Female

DRUGS (1)
  1. VYNDAQEL [Suspect]
     Active Substance: TAFAMIDIS MEGLUMINE
     Dosage: FREQUENCY : DAILY;?
     Route: 048

REACTIONS (6)
  - Cough [None]
  - Oropharyngeal pain [None]
  - Rhinorrhoea [None]
  - Headache [None]
  - Dysphonia [None]
  - Fatigue [None]
